FAERS Safety Report 4627769-5 (Version None)
Quarter: 2005Q2

REPORT INFORMATION
  Report Type: 
  Country: None (occurrence: None)
  Receive Date: 20050401
  Receipt Date: 20041006
  Transmission Date: 20051028
  Serious: Yes (Death, Hospitalization)
  Sender: FDA-Public Use
  Company Number: 9119

PATIENT

DRUGS (2)
  1. CARBOPLATIN [Suspect]
     Indication: BLADDER CANCER
     Dosage: 4 AUC PER_CYCLE
     Route: 042
  2. GEMCITABINE [Suspect]
     Dosage: 2000 MG/M2, PER_CYCLE
     Route: 042

REACTIONS (2)
  - FEBRILE NEUTROPENIA [None]
  - SEPSIS [None]
